FAERS Safety Report 8592881-5 (Version None)
Quarter: 2012Q3

REPORT INFORMATION
  Report Type: 
  Country: None (occurrence: None)
  Receive Date: 20120814
  Receipt Date: 20120809
  Transmission Date: 20120928
  Serious: No
  Sender: FDA-Public Use
  Company Number: US-B.I. PHARMACEUTICALS,INC./RIDGEFIELD-2012-BP-18897BP

PATIENT
  Age: 69 Year
  Sex: Female

DRUGS (7)
  1. DIGOXIN [Concomitant]
     Indication: ATRIAL FIBRILLATION
     Route: 048
  2. PAXIL [Concomitant]
     Indication: ANXIETY
     Route: 048
  3. KETOCONAZOLE [Concomitant]
     Indication: FUNGAL SKIN INFECTION
     Route: 061
  4. TYLENOL [Concomitant]
     Route: 048
  5. VITAMIN D [Concomitant]
     Indication: SUPPLEMENTATION THERAPY
     Route: 048
  6. PRADAXA [Suspect]
     Indication: ATRIAL FIBRILLATION
     Dosage: 300 MG
     Route: 048
     Dates: start: 20110501
  7. DITROPAN [Concomitant]
     Indication: HYPERTONIC BLADDER
     Route: 048

REACTIONS (4)
  - OBSESSIVE THOUGHTS [None]
  - DYSPEPSIA [None]
  - CONTUSION [None]
  - EPISTAXIS [None]
